FAERS Safety Report 7957918-2 (Version None)
Quarter: 2011Q4

REPORT INFORMATION
  Report Type: 
  Country: None (occurrence: None)
  Receive Date: 20111205
  Receipt Date: 20111128
  Transmission Date: 20120403
  Serious: Yes (Hospitalization, Other)
  Sender: FDA-Public Use
  Company Number: US-ABBOTT-11P-163-0879627-00

PATIENT
  Sex: Female
  Weight: 57.658 kg

DRUGS (9)
  1. VICODIN [Suspect]
     Indication: BACK PAIN
     Dates: start: 20100101, end: 20110101
  2. LIDOCAINE [Concomitant]
     Indication: BACK PAIN
     Route: 061
  3. VICODIN [Suspect]
     Dates: start: 20110101, end: 20110301
  4. GABAPENTIN [Suspect]
     Indication: NERVOUSNESS
     Dates: end: 20110301
  5. CYCLOBENZAPRINE [Concomitant]
     Indication: MUSCLE SPASMS
  6. INSULIN [Concomitant]
     Indication: DIABETES MELLITUS
  7. UNKNOWN PAIN MEDICATION [Concomitant]
     Indication: BURNING SENSATION
     Dates: start: 20110201, end: 20110301
  8. ASPIRIN [Concomitant]
     Indication: PRODUCT USED FOR UNKNOWN INDICATION
  9. EPIDURAL INJECTIONS [Concomitant]
     Indication: BACK PAIN
     Dosage: SIX INJECTIONS, ONCE A MONTH
     Route: 008

REACTIONS (2)
  - PRURITUS [None]
  - SKIN BURNING SENSATION [None]
